FAERS Safety Report 6245752-3 (Version None)
Quarter: 2009Q2

REPORT INFORMATION
  Report Type: 
  Country: None (occurrence: None)
  Receive Date: 20090625
  Receipt Date: 20090616
  Transmission Date: 20091009
  Serious: Yes (Hospitalization)
  Sender: FDA-Public Use
  Company Number: ZA-MERCK-0906ZAF00073

PATIENT
  Age: 3 Year
  Sex: Male

DRUGS (2)
  1. SINGULAIR [Suspect]
     Indication: CROUP INFECTIOUS
     Route: 048
     Dates: start: 20080101, end: 20090615
  2. SINGULAIR [Suspect]
     Route: 048
     Dates: start: 20090616, end: 20090616

REACTIONS (4)
  - ABDOMINAL PAIN [None]
  - MYDRIASIS [None]
  - OVERDOSE [None]
  - PSYCHOMOTOR HYPERACTIVITY [None]
